FAERS Safety Report 4796742-9 (Version None)
Quarter: 2005Q4

REPORT INFORMATION
  Report Type: 
  Country: None (occurrence: None)
  Receive Date: 20051007
  Receipt Date: 20050928
  Transmission Date: 20060501
  Serious: Yes (Death)
  Sender: FDA-Public Use
  Company Number: HQWYE738429SEP05

PATIENT
  Age: 57 Year
  Sex: Male

DRUGS (4)
  1. CORDARONE [Suspect]
     Indication: ATRIAL FIBRILLATION
     Dosage: 200  MG 1X PER 1 DAY ORAL
     Route: 048
  2. CORDARONE [Suspect]
     Indication: ATRIAL FLUTTER
     Dosage: 200  MG 1X PER 1 DAY ORAL
     Route: 048
  3. NEBIVOLOL HCL [Suspect]
     Indication: HYPERTENSIVE HEART DISEASE
     Dosage: 30 MG 1X PER 1 DAY ORAL
     Route: 048
  4. OXYCONTIN [Concomitant]

REACTIONS (3)
  - CARDIAC FAILURE [None]
  - DRUG INTERACTION [None]
  - SUDDEN DEATH [None]
